FAERS Safety Report 6713487-6 (Version None)
Quarter: 2010Q2

REPORT INFORMATION
  Report Type: 
  Country: None (occurrence: None)
  Receive Date: 20100504
  Receipt Date: 20100420
  Transmission Date: 20101027
  Serious: Yes (Hospitalization)
  Sender: FDA-Public Use
  Company Number: IDA-00353

PATIENT
  Age: 29 Year
  Sex: Male

DRUGS (4)
  1. INDERAL [Suspect]
     Dosage: 160 MG DAILY ORAL FORMULATION
     Route: 048
     Dates: start: 20091015
  2. TOPAMAX [Suspect]
     Dosage: 25 MG
     Dates: start: 20100313
  3. CLINDAMYCIN HYDROCHLORIDE [Concomitant]
  4. LEXAPRO [Concomitant]

REACTIONS (2)
  - DRUG INTERACTION [None]
  - DYSPNOEA [None]
